FAERS Safety Report 6541051-0 (Version None)
Quarter: 2010Q1

REPORT INFORMATION
  Report Type: 
  Country: None (occurrence: None)
  Receive Date: 20100118
  Receipt Date: 20100107
  Transmission Date: 20100710
  Serious: No
  Sender: FDA-Public Use
  Company Number: US-B.I. PHARMACEUTICALS,INC./RIDGEFIELD-2010-BP-00283BP

PATIENT
  Sex: Male

DRUGS (10)
  1. SPIRIVA [Suspect]
     Indication: CHRONIC OBSTRUCTIVE PULMONARY DISEASE
     Dosage: 18 MCG
     Route: 055
     Dates: start: 20090601
  2. COMBIVENT [Concomitant]
     Indication: CHRONIC OBSTRUCTIVE PULMONARY DISEASE
  3. ASPIRIN [Concomitant]
     Indication: MYOCARDIAL INFARCTION
  4. IMDUR [Concomitant]
     Indication: MYOCARDIAL INFARCTION
  5. MICARDIS [Concomitant]
     Indication: HYPERTENSION
  6. ALLOPURINOL [Concomitant]
     Indication: GOUT
  7. ATENOLOL [Concomitant]
     Indication: MYOCARDIAL INFARCTION
  8. ZOCOR [Concomitant]
     Indication: HYPERTENSION
  9. EYE VITAMINS [Concomitant]
     Indication: MACULAR DEGENERATION
  10. CARDURA [Concomitant]
     Indication: DYSURIA

REACTIONS (3)
  - DYSPNOEA [None]
  - OEDEMA PERIPHERAL [None]
  - PRURITUS [None]
